FAERS Safety Report 8041018-X (Version None)
Quarter: 2012Q1

REPORT INFORMATION
  Report Type: 
  Country: None (occurrence: None)
  Receive Date: 20120112
  Receipt Date: 20120106
  Transmission Date: 20120608
  Serious: Yes (Hospitalization)
  Sender: FDA-Public Use
  Company Number: US-SHIRE-ALL1-2012-00069

PATIENT
  Sex: Female
  Weight: 45.351 kg

DRUGS (1)
  1. VYVANSE [Suspect]
     Indication: ATTENTION DEFICIT/HYPERACTIVITY DISORDER
     Dosage: 50 MG, 1X/DAY:QD
     Route: 048
     Dates: start: 20100101

REACTIONS (11)
  - OBSESSIVE-COMPULSIVE DISORDER [None]
  - PARAESTHESIA [None]
  - TOBACCO ABUSE [None]
  - MYALGIA [None]
  - MIGRAINE [None]
  - FEELING ABNORMAL [None]
  - ANXIETY [None]
  - ANGER [None]
  - CHEST PAIN [None]
  - OEDEMA PERIPHERAL [None]
  - PARANOIA [None]
